FAERS Safety Report 4274094-0 (Version None)
Quarter: 2004Q1

REPORT INFORMATION
  Report Type: 
  Country: None (occurrence: None)
  Receive Date: 20040120
  Receipt Date: 20030929
  Transmission Date: 20041129
  Serious: Yes (Hospitalization)
  Sender: FDA-Public Use
  Company Number: FR-GLAXOSMITHKLINE-B0311342A

PATIENT
  Age: 35 Year
  Sex: Female
  Weight: 70 kg

DRUGS (6)
  1. LAMICTAL [Suspect]
     Indication: EPILEPSY
     Route: 048
     Dates: start: 20001211
  2. DEPAKINE [Concomitant]
     Dosage: 500MG TWICE PER DAY
     Route: 048
  3. TEGRETOL [Concomitant]
     Dosage: 400MG TWICE PER DAY
     Route: 048
     Dates: start: 19900101
  4. URBANYL [Concomitant]
     Route: 048
  5. PARKINANE [Concomitant]
     Dosage: 100MG PER DAY
     Route: 048
     Dates: start: 19950101
  6. RISPERDAL [Concomitant]
     Route: 048

REACTIONS (8)
  - ABNORMAL BEHAVIOUR [None]
  - AGGRESSION [None]
  - ANXIETY [None]
  - DELIRIUM [None]
  - HALLUCINATION, AUDITORY [None]
  - HALLUCINATION, VISUAL [None]
  - MENTAL DISORDER [None]
  - PSYCHOTIC DISORDER [None]
